FAERS Safety Report 5766765-1 (Version None)
Quarter: 2008Q2

REPORT INFORMATION
  Report Type: 
  Country: None (occurrence: None)
  Receive Date: 20080612
  Receipt Date: 20080603
  Transmission Date: 20081010
  Serious: Yes (Hospitalization)
  Sender: FDA-Public Use
  Company Number: FR-ROCHE-568682

PATIENT
  Sex: Male
  Weight: 68 kg

DRUGS (21)
  1. NAPROXEN SODIUM [Suspect]
     Indication: TORTICOLLIS
     Dosage: DOSING REGIMEN REPORTED AS UNKNOWN
     Route: 048
     Dates: start: 20080403, end: 20080407
  2. CELEBREX [Suspect]
     Indication: TORTICOLLIS
     Dosage: DOSING REGIMEN REPORTED AS UNKNOWN
     Route: 048
     Dates: start: 20080411, end: 20080414
  3. LODINE [Suspect]
     Indication: DRUG USE FOR UNKNOWN INDICATION
     Dosage: DOSING REGIMEN REPORTED AS UNKNOWN
     Route: 048
     Dates: start: 20080408, end: 20080410
  4. NIFLUGEL [Suspect]
     Indication: TORTICOLLIS
     Route: 050
     Dates: start: 20080403, end: 20080406
  5. DI-ANTALVIC [Concomitant]
     Dates: start: 20080403
  6. DI-ANTALVIC [Concomitant]
     Dates: start: 20080408
  7. DI-ANTALVIC [Concomitant]
     Dates: start: 20080411
  8. DI-ANTALVIC [Concomitant]
     Dates: start: 20080403
  9. DI-ANTALVIC [Concomitant]
     Dates: start: 20080408
  10. DI-ANTALVIC [Concomitant]
     Dates: start: 20080411
  11. METHOCARBAMOL [Concomitant]
     Dates: start: 20080403
  12. PANTOPRAZOLE SODIUM [Concomitant]
     Dates: start: 20080403
  13. THIOCOLCHICOSIDE [Concomitant]
     Dates: start: 20080408
  14. LEXOMIL [Concomitant]
     Dates: start: 20080408
  15. GAVISCON [Concomitant]
     Dates: start: 20080411
  16. GAVISCON [Concomitant]
     Dates: start: 20080411
  17. GAVISCON [Concomitant]
     Dates: start: 20080411
  18. GAVISCON [Concomitant]
     Dates: start: 20080411
  19. GAVISCON [Concomitant]
     Dates: start: 20080411
  20. GAVISCON [Concomitant]
     Dates: start: 20080411
  21. GAVISCON [Concomitant]
     Dates: start: 20080411

REACTIONS (3)
  - EPIDURITIS [None]
  - INFECTION [None]
  - PYOMYOSITIS [None]
